FAERS Safety Report 5241745-3 (Version None)
Quarter: 2007Q1

REPORT INFORMATION
  Report Type: 
  Country: None (occurrence: None)
  Receive Date: 20070220
  Receipt Date: 20070214
  Transmission Date: 20070707
  Serious: Yes (Death)
  Sender: FDA-Public Use
  Company Number: CN-ELI_LILLY_AND_COMPANY-CN200702002558

PATIENT
  Age: 2 Month
  Sex: Male

DRUGS (2)
  1. CECLOR [Suspect]
     Indication: PYREXIA
     Dosage: UNK, UNK
     Route: 048
     Dates: start: 20070206
  2. PARACETAMOL [Concomitant]
     Indication: PYREXIA
     Dosage: UNK, UNK
     Dates: start: 20070206

REACTIONS (1)
  - DEATH [None]
